FAERS Safety Report 6240700-4 (Version None)
Quarter: 2009Q2

REPORT INFORMATION
  Report Type: 
  Country: None (occurrence: None)
  Receive Date: 20090623
  Receipt Date: 20090203
  Transmission Date: 20091009
  Serious: No
  Sender: FDA-Public Use
  Company Number: US-ASTRAZENECA-2009UW03153

PATIENT
  Age: 70 Year
  Sex: Female
  Weight: 63.5 kg

DRUGS (13)
  1. PULMICORT RESPULES [Suspect]
     Indication: EMPHYSEMA
     Route: 055
  2. PREDNISONE TAB [Concomitant]
  3. BROVANA [Concomitant]
  4. PLAVIX [Concomitant]
  5. ZOCOR [Concomitant]
  6. UNIPHYL [Concomitant]
  7. TRUSOPT [Concomitant]
  8. ALPHAGAN [Concomitant]
  9. FUROSEMIDE [Concomitant]
  10. KLOR-CON [Concomitant]
  11. BONIVA [Concomitant]
     Indication: OSTEOPOROSIS
  12. DUONEB [Concomitant]
  13. VENTOLIN [Concomitant]

REACTIONS (1)
  - WEIGHT INCREASED [None]
